FAERS Safety Report 18509048 (Version 2)
Quarter: 2022Q4

REPORT INFORMATION
  Report Type: Spontaneous
  Country: IT (occurrence: IT)
  Receive Date: 20201117
  Receipt Date: 20221229
  Transmission Date: 20230113
  Serious: Yes (Other)
  Sender: FDA-Public Use
  Company Number: IT-MINISAL02-641912

PATIENT
  Age: 55 Year
  Sex: Male

DRUGS (3)
  1. ALPRAZOLAM [Suspect]
     Active Substance: ALPRAZOLAM
     Indication: Product used for unknown indication
     Dosage: 20 MILLIGRAM (TOTAL)
     Route: 048
     Dates: start: 20200920, end: 20200920
  2. LORAZEPAM [Suspect]
     Active Substance: LORAZEPAM
     Indication: Product used for unknown indication
     Dosage: 50 MILLIGRAM (TOTAL)
     Route: 048
     Dates: start: 20200920, end: 20200920
  3. LITHIUM SULFATE [Concomitant]
     Active Substance: LITHIUM SULFATE
     Indication: Product used for unknown indication
     Dosage: 2 DOSAGE FORM
     Route: 048

REACTIONS (4)
  - Bradyphrenia [Recovering/Resolving]
  - Balance disorder [Recovering/Resolving]
  - Drug abuse [Recovering/Resolving]
  - Intentional product misuse [Unknown]

NARRATIVE: CASE EVENT DATE: 20200920
